FAERS Safety Report 12357025 (Version 1)
Quarter: 2016Q2

REPORT INFORMATION
  Report Type: Spontaneous
  Country: US (occurrence: US)
  Receive Date: 20160511
  Receipt Date: 20160511
  Transmission Date: 20160815
  Serious: Yes (Other)
  Sender: FDA-Public Use
  Company Number: ADR-2015-01411

PATIENT
  Age: 39 Year
  Sex: Male

DRUGS (2)
  1. BACLOFEN. [Suspect]
     Active Substance: BACLOFEN
     Dosage: 10 MG, TD, TID, PRN
     Route: 048
  2. LIORESAL [Suspect]
     Active Substance: BACLOFEN
     Dosage: 1401.67 MCG/DAY
     Route: 037

REACTIONS (4)
  - Pruritus [Unknown]
  - Implant site extravasation [Unknown]
  - Muscle spasticity [Unknown]
  - Implant site infection [Unknown]
